FAERS Safety Report 6688372-9 (Version None)
Quarter: 2010Q2

REPORT INFORMATION
  Report Type: 
  Country: None (occurrence: None)
  Receive Date: 20100420
  Receipt Date: 20100412
  Transmission Date: 20101027
  Serious: Yes (Other)
  Sender: FDA-Public Use
  Company Number: PHHY2010US23006

PATIENT
  Sex: Male

DRUGS (3)
  1. EXJADE [Suspect]
     Indication: CHRONIC MYELOID LEUKAEMIA
     Dosage: 2000 MG, QD
     Route: 048
     Dates: start: 20080101
  2. EXJADE [Suspect]
     Indication: IRON OVERLOAD
  3. COUMADIN [Suspect]

REACTIONS (1)
  - CEREBRAL HAEMORRHAGE [None]
